FAERS Safety Report 4344196-9 (Version None)
Quarter: 2004Q2

REPORT INFORMATION
  Report Type: 
  Country: None (occurrence: None)
  Receive Date: 20040422
  Receipt Date: 20040415
  Transmission Date: 20050107
  Serious: Yes (Other)
  Sender: FDA-Public Use
  Company Number: FR-BRISTOL-MYERS SQUIBB COMPANY-12562120

PATIENT
  Age: 37 Year
  Sex: Male

DRUGS (3)
  1. REYATAZ [Suspect]
     Indication: HIV INFECTION
     Route: 048
     Dates: start: 20031101
  2. EPIVIR [Concomitant]
     Indication: HIV INFECTION
     Dates: start: 20031101
  3. ZIAGEN [Concomitant]
     Indication: HIV INFECTION
     Dates: start: 20031101

REACTIONS (1)
  - MONARTHRITIS [None]
